FAERS Safety Report 6043513-1 (Version None)
Quarter: 2009Q1

REPORT INFORMATION
  Report Type: 
  Country: None (occurrence: None)
  Receive Date: 20090114
  Receipt Date: 20090114
  Transmission Date: 20090719
  Serious: Yes (Life-Threatening)
  Sender: FDA-Public Use
  Company Number: None

PATIENT
  Age: 42 Year
  Sex: Female
  Weight: 84.369 kg

DRUGS (1)
  1. VERSED [Suspect]
     Indication: UTERINE DILATION AND CURETTAGE

REACTIONS (5)
  - DYSPNOEA [None]
  - FEAR [None]
  - LOSS OF CONSCIOUSNESS [None]
  - MUSCLE TIGHTNESS [None]
  - PARALYSIS [None]
